FAERS Safety Report 5057608-2 (Version None)
Quarter: 2006Q3

REPORT INFORMATION
  Report Type: 
  Country: None (occurrence: None)
  Receive Date: 20060721
  Receipt Date: 20051220
  Transmission Date: 20061208
  Serious: No
  Sender: FDA-Public Use
  Company Number: US-GLAXOSMITHKLINE-A0586478A

PATIENT
  Sex: Female

DRUGS (7)
  1. AVANDIA [Suspect]
     Dosage: 8MG PER DAY
     Route: 048
     Dates: start: 20040329
  2. CELEBREX [Concomitant]
  3. GLUCOPHAGE [Concomitant]
  4. ACTONEL [Concomitant]
  5. DIOVAN [Concomitant]
  6. AMARYL [Concomitant]
  7. UROXATRAL [Concomitant]

REACTIONS (1)
  - OEDEMA [None]
